FAERS Safety Report 10472295 (Version 1)
Quarter: 2014Q3

REPORT INFORMATION
  Report Type: Report from Study
  Country: US (occurrence: US)
  Receive Date: 20140924
  Receipt Date: 20140924
  Transmission Date: 20150326
  Serious: Yes (Hospitalization)
  Sender: FDA-Public Use
  Company Number: US-ROCHE-1423707

PATIENT
  Age: 6 Year
  Sex: Male
  Weight: 23.8 kg

DRUGS (3)
  1. MIRALAX [Concomitant]
     Active Substance: POLYETHYLENE GLYCOL 3350
  2. NUTROPIN AQ [Suspect]
     Active Substance: SOMATROPIN
     Indication: GROWTH HORMONE DEFICIENCY
     Route: 058
     Dates: start: 20110708
  3. NUTROPIN AQ [Suspect]
     Active Substance: SOMATROPIN
     Route: 058

REACTIONS (11)
  - Paronychia [Unknown]
  - Erythema [Unknown]
  - Pain [Unknown]
  - Decreased appetite [Unknown]
  - Thirst [Unknown]
  - Night sweats [Unknown]
  - Diarrhoea [Unknown]
  - Pyrexia [Unknown]
  - Empty sella syndrome [Unknown]
  - Subcutaneous abscess [Unknown]
  - Constipation [Unknown]

NARRATIVE: CASE EVENT DATE: 201307
